FAERS Safety Report 13880565 (Version 2)
Quarter: 2018Q1

REPORT INFORMATION
  Report Type: Report from Study
  Country: US (occurrence: US)
  Receive Date: 20170818
  Receipt Date: 20180204
  Transmission Date: 20180508
  Serious: Yes (Other)
  Sender: FDA-Public Use
  Company Number: US-ALEXION PHARMACEUTICALS INC-A201708880

PATIENT
  Age: 28 Year
  Sex: Male

DRUGS (2)
  1. SOLIRIS [Suspect]
     Active Substance: ECULIZUMAB
     Indication: HAEMOLYTIC URAEMIC SYNDROME
     Dosage: UNK
     Route: 042
     Dates: start: 201412
  2. SOLIRIS [Suspect]
     Active Substance: ECULIZUMAB
     Dosage: UNK
     Route: 065

REACTIONS (18)
  - Aspartate aminotransferase increased [Unknown]
  - Carbon dioxide decreased [Unknown]
  - Thrombotic microangiopathy [Unknown]
  - Blood chloride decreased [Unknown]
  - Blood glucose increased [Unknown]
  - Blood urea increased [Unknown]
  - Blood urea nitrogen/creatinine ratio decreased [Unknown]
  - Aspartate aminotransferase decreased [Unknown]
  - Platelet count decreased [Unknown]
  - Pain in extremity [Unknown]
  - Anion gap increased [Unknown]
  - Blood sodium decreased [Unknown]
  - Blood calcium decreased [Unknown]
  - Blood creatinine increased [Unknown]
  - Protein total increased [Unknown]
  - Haemoglobin decreased [Unknown]
  - Pain [Unknown]
  - Blood potassium increased [Unknown]

NARRATIVE: CASE EVENT DATE: 20160426
